FAERS Safety Report 9523586 (Version 2)
Quarter: 2013Q3

REPORT INFORMATION
  Report Type: Report from Study
  Country: JP (occurrence: JP)
  Receive Date: 20130913
  Receipt Date: 20130913
  Transmission Date: 20140515
  Serious: Yes (Hospitalization)
  Sender: FDA-Public Use
  Company Number: JP-BRISTOL-MYERS SQUIBB COMPANY-15651326

PATIENT
  Age: 71 Year
  Sex: Female
  Weight: 46 kg

DRUGS (4)
  1. BARACLUDE [Suspect]
     Indication: CHRONIC HEPATITIS B
     Route: 048
     Dates: start: 20080221
  2. URSO [Concomitant]
     Indication: CHRONIC HEPATITIS B
     Route: 048
     Dates: start: 20080221
  3. LAXOBERON [Concomitant]
     Indication: CONSTIPATION
     Route: 048
     Dates: start: 20080221
  4. NIVADIL [Concomitant]
     Indication: HYPERTENSION
     Dosage: 4 MG 21SEP TO 14SEP09?3 MG 15SEP09 TO CON?FORM TAB
     Route: 048
     Dates: start: 20090221

REACTIONS (1)
  - Metastases to breast [Recovering/Resolving]
